FAERS Safety Report 4433076-6 (Version None)
Quarter: 2004Q3

REPORT INFORMATION
  Report Type: 
  Country: None (occurrence: None)
  Receive Date: 20040823
  Receipt Date: 20040812
  Transmission Date: 20050211
  Serious: Yes (Death)
  Sender: FDA-Public Use
  Company Number: TAP2004Q01034

PATIENT

DRUGS (1)
  1. PREVACID [Suspect]
     Dates: start: 20000101, end: 20000101

REACTIONS (2)
  - ANAPHYLACTIC REACTION [None]
  - RESPIRATORY FAILURE [None]
